FAERS Safety Report 4361239-7 (Version None)
Quarter: 2004Q2

REPORT INFORMATION
  Report Type: 
  Country: None (occurrence: None)
  Receive Date: 20040519
  Receipt Date: 20040511
  Transmission Date: 20050107
  Serious: Yes (Hospitalization)
  Sender: FDA-Public Use
  Company Number: 2004-05-0418

PATIENT
  Age: 47 Year
  Sex: Female

DRUGS (7)
  1. VIRAFERONPEG (PEG INTERFERON ALFA-2B RECOMBINANT) INJECTABLE [Suspect]
     Indication: HEPATITIS B
     Dosage: 50 MCG QWK SUBCUTANEOUS
     Route: 058
     Dates: start: 20031009, end: 20031120
  2. VIRAFERONPEG (PEG INTERFERON ALFA-2B RECOMBINANT) INJECTABLE [Suspect]
     Indication: HEPATITIS C
     Dosage: 50 MCG QWK SUBCUTANEOUS
     Route: 058
     Dates: start: 20031009, end: 20031120
  3. REBETOL [Suspect]
     Indication: HEPATITIS B
     Dosage: ORAL
     Route: 048
     Dates: start: 20031009, end: 20031113
  4. REBETOL [Suspect]
     Indication: HEPATITIS C
     Dosage: ORAL
     Route: 048
     Dates: start: 20031009, end: 20031113
  5. VIREAD [Concomitant]
  6. ZIAGEN [Concomitant]
  7. EPIVIR [Concomitant]

REACTIONS (12)
  - ANAEMIA [None]
  - APRAXIA [None]
  - ASTHENIA [None]
  - BRAIN SCAN ABNORMAL [None]
  - CONFUSIONAL STATE [None]
  - DEPRESSED LEVEL OF CONSCIOUSNESS [None]
  - DIARRHOEA [None]
  - ELECTROENCEPHALOGRAM ABNORMAL [None]
  - HEADACHE [None]
  - HYPOPHOSPHATAEMIA [None]
  - NERVOUS SYSTEM DISORDER [None]
  - VOMITING [None]
